FAERS Safety Report 12756492 (Version 2)
Quarter: 2016Q4

REPORT INFORMATION
  Report Type: Spontaneous
  Country: BR (occurrence: BR)
  Receive Date: 20160917
  Receipt Date: 20161015
  Transmission Date: 20170207
  Serious: Yes (Hospitalization, Other)
  Sender: FDA-Public Use
  Company Number: BR-AMGEN-BRASP2016125765

PATIENT
  Age: 47 Year
  Sex: Female

DRUGS (1)
  1. ENBREL [Suspect]
     Active Substance: ETANERCEPT
     Indication: PRODUCT USED FOR UNKNOWN INDICATION
     Dosage: UNK
     Route: 065
     Dates: start: 2012, end: 2016

REACTIONS (11)
  - Musculoskeletal disorder [Unknown]
  - Pain [Unknown]
  - Facial bones fracture [Recovering/Resolving]
  - Fall [Unknown]
  - Osteoarthritis [Unknown]
  - Skull fracture [Recovering/Resolving]
  - Arthritis [Unknown]
  - Road traffic accident [Recovering/Resolving]
  - Malaise [Unknown]
  - Amnesia [Unknown]
  - Psoriasis [Unknown]

NARRATIVE: CASE EVENT DATE: 2016
